FAERS Safety Report 17270816 (Version 1)
Quarter: 2020Q1

REPORT INFORMATION
  Report Type: Spontaneous
  Country: US (occurrence: US)
  Receive Date: 20200115
  Receipt Date: 20200115
  Transmission Date: 20200409
  Serious: No
  Sender: FDA-Public Use
  Company Number: US-ELI_LILLY_AND_COMPANY-US202001004447

PATIENT
  Age: 56 Year
  Sex: Male

DRUGS (2)
  1. ALOGLIPTIN. [Concomitant]
     Active Substance: ALOGLIPTIN
     Indication: TYPE 2 DIABETES MELLITUS
  2. BASAGLAR [Suspect]
     Active Substance: INSULIN GLARGINE
     Indication: TYPE 2 DIABETES MELLITUS
     Dosage: 20 U, UNKNOWN
     Route: 058
     Dates: start: 20191231

REACTIONS (1)
  - Vision blurred [Not Recovered/Not Resolved]

NARRATIVE: CASE EVENT DATE: 20200102
